FAERS Safety Report 7700976-0 (Version None)
Quarter: 2011Q3

REPORT INFORMATION
  Report Type: 
  Country: None (occurrence: None)
  Receive Date: 20110822
  Receipt Date: 20110811
  Transmission Date: 20111222
  Serious: Yes (Other)
  Sender: FDA-Public Use
  Company Number: US-ASTELLAS-2011US004860

PATIENT
  Age: 64 Year
  Sex: Female
  Weight: 66 kg

DRUGS (6)
  1. ERLOTINIB HYDROCHLORIDE [Suspect]
     Dosage: UNK MG, QHS
     Route: 048
     Dates: start: 20110707
  2. AZD6244 HYDROGEN SULFATE [Suspect]
     Dosage: 150 MG, UID/QD
     Route: 048
     Dates: end: 20110808
  3. ERLOTINIB HYDROCHLORIDE [Suspect]
     Dosage: 150 MG, UID/QD
     Route: 048
     Dates: end: 20110808
  4. AZD6244 HYDROGEN SULFATE [Suspect]
     Indication: LUNG ADENOCARCINOMA
     Dosage: 150 MG, UID/QD
     Route: 048
     Dates: start: 20110615
  5. AZD6244 HYDROGEN SULFATE [Suspect]
     Dosage: UNK
     Route: 048
     Dates: start: 20110707
  6. ERLOTINIB HYDROCHLORIDE [Suspect]
     Indication: LUNG ADENOCARCINOMA
     Dosage: 100 MG, QHS
     Route: 048
     Dates: start: 20110615

REACTIONS (2)
  - DIARRHOEA [None]
  - BLOOD CREATINE PHOSPHOKINASE INCREASED [None]
